FAERS Safety Report 19062933 (Version 1)
Quarter: 2021Q1

REPORT INFORMATION
  Report Type: Spontaneous
  Country: NL (occurrence: NL)
  Receive Date: 20210326
  Receipt Date: 20210326
  Transmission Date: 20210420
  Serious: Yes (Hospitalization, Other)
  Sender: FDA-Public Use
  Company Number: NL-AMGEN-NLDSP2021043944

PATIENT

DRUGS (8)
  1. IRINOTECAN [Suspect]
     Active Substance: IRINOTECAN
     Indication: COLORECTAL CANCER
  2. FLUOROURACIL. [Suspect]
     Active Substance: FLUOROURACIL
     Indication: METASTASES TO LIVER
  3. LEUCOVORIN [CALCIUM FOLINATE] [Suspect]
     Active Substance: LEUCOVORIN
     Indication: METASTASES TO LIVER
     Dosage: 400 MG/M2 IN 120 MINUTES AS PER PROTOCOL
     Route: 042
     Dates: start: 20201202
  4. LEUCOVORIN [CALCIUM FOLINATE] [Suspect]
     Active Substance: LEUCOVORIN
     Indication: COLORECTAL CANCER
  5. BEVACIZUMAB. [Suspect]
     Active Substance: BEVACIZUMAB
     Indication: COLORECTAL CANCER
     Dosage: (5 MG/KG IN 15?30 MINUTES AS PER PROTOCOL
     Route: 042
     Dates: start: 20201202
  6. FLUOROURACIL. [Suspect]
     Active Substance: FLUOROURACIL
     Indication: COLORECTAL CANCER
     Dosage: 400 MG/M2 WITHIN 4 MINUTES AS PER PROTOCOL
     Route: 065
     Dates: start: 20201202
  7. BEVACIZUMAB. [Suspect]
     Active Substance: BEVACIZUMAB
     Indication: METASTASES TO LIVER
  8. IRINOTECAN [Suspect]
     Active Substance: IRINOTECAN
     Indication: METASTASES TO LIVER
     Dosage: 180 MG/M2 IN 60 MINUTES AS PER PROTOCOL
     Route: 042
     Dates: start: 20201202

REACTIONS (3)
  - Pyrexia [Recovering/Resolving]
  - Embolism [Recovering/Resolving]
  - Large intestine perforation [Unknown]

NARRATIVE: CASE EVENT DATE: 20210121
